FAERS Safety Report 6275840-7 (Version None)
Quarter: 2009Q3

REPORT INFORMATION
  Report Type: 
  Country: None (occurrence: None)
  Receive Date: 20090717
  Receipt Date: 20090709
  Transmission Date: 20100115
  Serious: Yes (Other)
  Sender: FDA-Public Use
  Company Number: ADR6872009

PATIENT
  Age: 72 Year
  Sex: Male

DRUGS (2)
  1. SIMVASTATIN [Suspect]
  2. MAREVAN [Concomitant]

REACTIONS (1)
  - INTERNATIONAL NORMALISED RATIO INCREASED [None]
